FAERS Safety Report 7831869-6 (Version None)
Quarter: 2011Q4

REPORT INFORMATION
  Report Type: 
  Country: None (occurrence: None)
  Receive Date: 20111021
  Receipt Date: 20111010
  Transmission Date: 20120403
  Serious: Yes (Hospitalization)
  Sender: FDA-Public Use
  Company Number: US-OPTIMER-20110017

PATIENT

DRUGS (5)
  1. ENOXAPARIN [Concomitant]
     Indication: THROMBOSIS PROPHYLAXIS
     Dosage: 130 MG, BID
     Dates: start: 20110806, end: 20110810
  2. DIFICID [Suspect]
     Indication: CLOSTRIDIAL INFECTION
     Dosage: 200 MG, BID
     Route: 048
     Dates: start: 20110804, end: 20110811
  3. VANCOMYCIN HCL [Concomitant]
     Indication: CLOSTRIDIAL INFECTION
     Dosage: UNK
     Route: 048
     Dates: start: 20110804, end: 20110826
  4. DIFICID [Suspect]
     Dosage: 200 MG, BID
     Route: 048
     Dates: start: 20110830
  5. FLAGYL [Concomitant]
     Indication: CLOSTRIDIAL INFECTION
     Dosage: UNK
     Route: 042
     Dates: start: 20110806, end: 20110801

REACTIONS (7)
  - SHOCK [None]
  - COLITIS [None]
  - WHITE BLOOD CELL COUNT INCREASED [None]
  - HAEMATOMA [None]
  - HAEMORRHAGE [None]
  - ACUTE RESPIRATORY FAILURE [None]
  - COLITIS ISCHAEMIC [None]
